FAERS Safety Report 4732324-2 (Version None)
Quarter: 2005Q3

REPORT INFORMATION
  Report Type: 
  Country: None (occurrence: None)
  Receive Date: 20050726
  Receipt Date: 20050502
  Transmission Date: 20060218
  Serious: Yes (Hospitalization)
  Sender: FDA-Public Use
  Company Number: 05USA0039

PATIENT

DRUGS (1)
  1. AGGRASTAT [Suspect]
     Dosage: 0.4 MG/KG/MIN

REACTIONS (2)
  - ACCIDENTAL OVERDOSE [None]
  - INJECTION SITE HAEMORRHAGE [None]
